FAERS Safety Report 23113445 (Version 1)
Quarter: 2023Q4

REPORT INFORMATION
  Report Type: Report from Study
  Country: CA (occurrence: CA)
  Receive Date: 20231027
  Receipt Date: 20231027
  Transmission Date: 20240109
  Serious: Yes (Other)
  Sender: FDA-Public Use
  Company Number: CA-002147023-NVSC2023CA228011

PATIENT
  Age: 70 Year
  Sex: Female

DRUGS (4)
  1. XOLAIR [Suspect]
     Active Substance: OMALIZUMAB
     Indication: Asthma
     Dosage: 150 MG, EVERY 4 WEEKS
     Route: 058
     Dates: start: 20130225
  2. DIOVAN [Suspect]
     Active Substance: VALSARTAN
     Indication: Product used for unknown indication
     Dosage: UNK
     Route: 065
  3. METHOTREXATE [Concomitant]
     Active Substance: METHOTREXATE
     Indication: Product used for unknown indication
     Dosage: UNK
     Route: 065
  4. EPIPEN [Concomitant]
     Active Substance: EPINEPHRINE
     Indication: Product used for unknown indication
     Dosage: UNK
     Route: 065

REACTIONS (22)
  - Graves^ disease [Unknown]
  - Meningioma [Unknown]
  - Bronchiectasis [Unknown]
  - Thyroid cancer [Unknown]
  - Cough [Unknown]
  - Dyspnoea [Unknown]
  - Wheezing [Unknown]
  - Bronchopulmonary aspergillosis allergic [Unknown]
  - Sinusitis [Unknown]
  - Upper respiratory tract infection [Unknown]
  - Sinus congestion [Unknown]
  - Nasal polyps [Unknown]
  - Lacrimation increased [Unknown]
  - Nasal congestion [Unknown]
  - Gastrooesophageal reflux disease [Unknown]
  - Eye disorder [Unknown]
  - Swelling face [Unknown]
  - Pruritus [Unknown]
  - Oropharyngeal discomfort [Unknown]
  - Somnolence [Unknown]
  - Fatigue [Unknown]
  - Forced expiratory volume decreased [Unknown]

NARRATIVE: CASE EVENT DATE: 20210420
